FAERS Safety Report 21909588 (Version 1)
Quarter: 2023Q1

REPORT INFORMATION
  Report Type: Spontaneous
  Country: US (occurrence: US)
  Receive Date: 20230125
  Receipt Date: 20230125
  Transmission Date: 20230417
  Serious: Yes (Hospitalization, Other)
  Sender: FDA-Public Use
  Company Number: US-PINNACLE BIOLOGICS INC-2023-CLI-000001

PATIENT

DRUGS (1)
  1. PHOTOFRIN [Suspect]
     Active Substance: PORFIMER SODIUM
     Indication: Tracheal cancer
     Dosage: UNK, SINGLE
     Route: 065
     Dates: start: 20221211, end: 20221211

REACTIONS (6)
  - Respiratory arrest [Not Recovered/Not Resolved]
  - Cardiac arrest [Not Recovered/Not Resolved]
  - COVID-19 pneumonia [Recovering/Resolving]
  - Pneumonia influenzal [Recovered/Resolved]
  - Oropharyngeal swelling [Unknown]
  - Secretion discharge [Recovering/Resolving]

NARRATIVE: CASE EVENT DATE: 20230109
